FAERS Safety Report 10623435 (Version 1)
Quarter: 2014Q4

REPORT INFORMATION
  Report Type: Spontaneous
  Country: CH (occurrence: CH)
  Receive Date: 20141203
  Receipt Date: 20141203
  Transmission Date: 20150529
  Serious: Yes (Hospitalization, Other)
  Sender: FDA-Public Use
  Company Number: CH-ASTRAZENECA-2014SE90862

PATIENT
  Age: 19889 Day
  Sex: Female

DRUGS (4)
  1. NEXIUM [Suspect]
     Active Substance: ESOMEPRAZOLE MAGNESIUM
     Indication: GASTRITIS
     Route: 048
     Dates: start: 20141018, end: 20141020
  2. PANTOZOL [Suspect]
     Active Substance: PANTOPRAZOLE SODIUM
     Indication: ABDOMINAL PAIN UPPER
     Route: 048
     Dates: start: 20141017, end: 20141017
  3. MEFENAMIC-ACID [Suspect]
     Active Substance: MEFENAMIC ACID
     Indication: ABDOMINAL PAIN
     Route: 048
     Dates: start: 20141017, end: 20141017
  4. PRIMPERAN [Suspect]
     Active Substance: METOCLOPRAMIDE HYDROCHLORIDE
     Indication: ABDOMINAL PAIN UPPER
     Route: 048
     Dates: start: 20141017, end: 20141017

REACTIONS (11)
  - General physical health deterioration [Unknown]
  - Urticaria [Recovering/Resolving]
  - Sepsis [Unknown]
  - Haemoglobin decreased [Unknown]
  - Lip swelling [Recovered/Resolved]
  - Angioedema [Recovering/Resolving]
  - Systemic inflammatory response syndrome [Unknown]
  - Oliguria [Unknown]
  - Pyrexia [Unknown]
  - Hypotension [Unknown]
  - Abdominal pain [Unknown]

NARRATIVE: CASE EVENT DATE: 20141017
